FAERS Safety Report 24021616 (Version 1)
Quarter: 2024Q2

REPORT INFORMATION
  Report Type: Spontaneous
  Country: US (occurrence: US)
  Receive Date: 20240627
  Receipt Date: 20240627
  Transmission Date: 20240716
  Serious: Yes (Other)
  Sender: FDA-Public Use
  Company Number: US-MALLINCKRODT-MNK202404078

PATIENT
  Age: 37 Year
  Sex: Female

DRUGS (2)
  1. NITRIC OXIDE [Suspect]
     Active Substance: NITRIC OXIDE
     Indication: Acute respiratory distress syndrome
     Dosage: UNKNOWN
     Route: 055
  2. DEXAMETHASONE [Concomitant]
     Active Substance: DEXAMETHASONE
     Dosage: UNKNOWN

REACTIONS (5)
  - Histoplasmosis [Not Recovered/Not Resolved]
  - Epididymitis blastomyces [Not Recovered/Not Resolved]
  - Cytokine release syndrome [Unknown]
  - Fungal infection [Not Recovered/Not Resolved]
  - Product use issue [Unknown]
